FAERS Safety Report 4634216-6 (Version None)
Quarter: 2005Q2

REPORT INFORMATION
  Report Type: 
  Country: None (occurrence: None)
  Receive Date: 20050325
  Receipt Date: 20041230
  Transmission Date: 20051028
  Serious: No
  Sender: FDA-Public Use
  Company Number: USA030331523

PATIENT
  Age: 75 Year
  Sex: Female
  Weight: 64 kg

DRUGS (8)
  1. FORTEO [Suspect]
     Indication: OSTEOPOROSIS
     Dosage: 20 UG DAY
     Dates: start: 20030117, end: 20041230
  2. ACTONEL [Concomitant]
  3. LIPITOR [Concomitant]
  4. HYDROCHLOROTHIAZIDE [Concomitant]
  5. LOTENSIN [Concomitant]
  6. ATENOLOL [Concomitant]
  7. VITAMINS [Concomitant]
  8. PREMARIN [Concomitant]

REACTIONS (7)
  - ASTHENIA [None]
  - BIOPSY BONE MARROW [None]
  - DIZZINESS [None]
  - FATIGUE [None]
  - INJECTION SITE HAEMORRHAGE [None]
  - NAUSEA [None]
  - PROTEIN TOTAL INCREASED [None]
